FAERS Safety Report 9965351 (Version 1)
Quarter: 2014Q1

REPORT INFORMATION
  Report Type: Report from Study
  Country: US (occurrence: US)
  Receive Date: 20140305
  Receipt Date: 20140305
  Transmission Date: 20141002
  Serious: No
  Sender: FDA-Public Use
  Company Number: US-ABBVIE-13P-163-1126398-00

PATIENT
  Age: 57 Year
  Sex: Female

DRUGS (5)
  1. HUMIRA [Suspect]
     Indication: COLITIS ULCERATIVE
     Dates: start: 20130607
  2. STEROID [Suspect]
     Indication: PRODUCT USED FOR UNKNOWN INDICATION
  3. ASACOL [Concomitant]
     Indication: COLITIS ULCERATIVE
     Route: 048
  4. ENTOCORT CIR [Concomitant]
     Indication: COLITIS ULCERATIVE
     Dosage: 3 MG DAILY
     Route: 048
  5. HYDROCORTISONE [Concomitant]
     Indication: COLITIS ULCERATIVE
     Dosage: 100 MG DAILY
     Route: 054

REACTIONS (2)
  - Insomnia [Not Recovered/Not Resolved]
  - Blood cholesterol increased [Not Recovered/Not Resolved]
